FAERS Safety Report 5954116-9 (Version None)
Quarter: 2008Q4

REPORT INFORMATION
  Report Type: 
  Country: None (occurrence: None)
  Receive Date: 20081117
  Receipt Date: 20081110
  Transmission Date: 20090506
  Serious: Yes (Other)
  Sender: FDA-Public Use
  Company Number: GB-RANBAXY-2008RR-18995

PATIENT
  Age: 52 Year
  Sex: Male

DRUGS (7)
  1. CARVEDILOL [Suspect]
     Dosage: 6.23 MG, BID
  2. SPIRONOLACTONE [Suspect]
     Dosage: 25 MG, 3/WEEK
  3. FUROSEMIDE [Suspect]
     Dosage: 80 MG, QD
  4. LISINOPRIL [Suspect]
     Dosage: 20 MG, QD
  5. DEXAMETHASONE [Suspect]
     Indication: AUTOIMMUNE DISORDER
     Dosage: 5 MG, BID
     Route: 048
  6. LIDOCAINE [Suspect]
     Indication: ORAL PAIN
     Dosage: UNK
  7. IBUPROFEN TABLETS [Suspect]
     Indication: HEADACHE
     Dosage: 800 MG, PRN

REACTIONS (1)
  - TOXIC EPIDERMAL NECROLYSIS [None]
